FAERS Safety Report 18660389 (Version 1)
Quarter: 2020Q4

REPORT INFORMATION
  Report Type: Spontaneous
  Country: US (occurrence: US)
  Receive Date: 20201223
  Receipt Date: 20201223
  Transmission Date: 20210114
  Serious: Yes (Other)
  Sender: FDA-Public Use
  Company Number: None

PATIENT
  Sex: Female

DRUGS (1)
  1. BUPRENORPHINE 7.5MCG/HR WEEKLY PATCHES [Suspect]
     Active Substance: BUPRENORPHINE

REACTIONS (2)
  - Product intolerance [None]
  - Somnolence [None]
